FAERS Safety Report 6443968-4 (Version None)
Quarter: 2009Q4

REPORT INFORMATION
  Report Type: 
  Country: None (occurrence: None)
  Receive Date: 20091116
  Receipt Date: 20091116
  Transmission Date: 20100525
  Serious: Yes (Other)
  Sender: FDA-Public Use
  Company Number: None

PATIENT
  Age: 60 Year
  Sex: Female
  Weight: 70.3075 kg

DRUGS (2)
  1. LISINOPRIL AND HYDROCHLOROTHIAZIDE [Suspect]
     Indication: HYPERTENSION
     Dosage: 10/12.5 1 A DAY PO
     Route: 048
     Dates: start: 20090906, end: 20090908
  2. LISINOPRIL AND HYDROCHLOROTHIAZIDE [Suspect]
     Indication: OEDEMA
     Dosage: 10/12.5 1 A DAY PO
     Route: 048
     Dates: start: 20090906, end: 20090908

REACTIONS (5)
  - DIARRHOEA [None]
  - MUSCLE SPASMS [None]
  - NAUSEA [None]
  - PRODUCT QUALITY ISSUE [None]
  - PRODUCT SUBSTITUTION ISSUE [None]
